FAERS Safety Report 5788955-4 (Version None)
Quarter: 2008Q2

REPORT INFORMATION
  Report Type: 
  Country: None (occurrence: None)
  Receive Date: 20080626
  Receipt Date: 20080623
  Transmission Date: 20081010
  Serious: Yes (Disabling)
  Sender: FDA-Public Use
  Company Number: GB-TEVA-173292ISR

PATIENT
  Age: 50 Year
  Sex: Female
  Weight: 70.8 kg

DRUGS (1)
  1. TERBINAFINE HCL [Suspect]
     Indication: ONYCHOMYCOSIS
     Dates: start: 20080212, end: 20080523

REACTIONS (1)
  - ANOSMIA [None]
